FAERS Safety Report 13612646 (Version 1)
Quarter: 2017Q2

REPORT INFORMATION
  Report Type: Report from Study
  Country: CN (occurrence: CN)
  Receive Date: 20170605
  Receipt Date: 20170605
  Transmission Date: 20170830
  Serious: Yes (Other)
  Sender: FDA-Public Use
  Company Number: CN-MYLANLABS-2017M1033576

PATIENT

DRUGS (1)
  1. PREDNISONE. [Suspect]
     Active Substance: PREDNISONE
     Indication: COLITIS ULCERATIVE
     Dosage: 15MG PER DAY AS MAINTENANCE BEFORE AND AFTER TRANSPLANT
     Route: 065

REACTIONS (2)
  - Immunodeficiency [Unknown]
  - Skin lesion [Unknown]
